FAERS Safety Report 4630784-9 (Version None)
Quarter: 2005Q2

REPORT INFORMATION
  Report Type: 
  Country: None (occurrence: None)
  Receive Date: 20050405
  Receipt Date: 20050405
  Transmission Date: 20051028
  Serious: Yes (Hospitalization)
  Sender: FDA-Public Use
  Company Number: None

PATIENT
  Age: 67 Year
  Sex: Female
  Weight: 90.7 kg

DRUGS (7)
  1. ZOSYN [Suspect]
     Indication: WOUND INFECTION
     Dosage: 3.375GRAM  Q8H   INTRAVENOU
     Route: 042
     Dates: start: 20050208, end: 20050329
  2. VANCOMYCIN [Suspect]
     Dosage: 750MG   Q24HR OVER 1HR   INTRAVENOU
     Route: 042
     Dates: start: 20050208, end: 20050329
  3. GAPAPENTIN [Concomitant]
  4. COUMADIN [Concomitant]
  5. ALLOPURINOL [Concomitant]
  6. PREVACID [Concomitant]
  7. NORVASC [Concomitant]

REACTIONS (4)
  - ANAEMIA [None]
  - NEUTROPENIA [None]
  - RASH [None]
  - THROMBOCYTOPENIA [None]
